FAERS Safety Report 5008506-1 (Version None)
Quarter: 2006Q2

REPORT INFORMATION
  Report Type: 
  Country: None (occurrence: None)
  Receive Date: 20060523
  Receipt Date: 20060328
  Transmission Date: 20061013
  Serious: Yes (Hospitalization)
  Sender: FDA-Public Use
  Company Number: GBWYE512428MAR06

PATIENT
  Sex: Female

DRUGS (6)
  1. ENBREL [Suspect]
     Indication: RHEUMATOID ARTHRITIS
     Dosage: UNKNOWN
     Route: 058
     Dates: start: 20041201, end: 20060317
  2. ENBREL [Suspect]
     Dosage: UNKNOWN
     Dates: start: 20060320
  3. ETODOLAC [Concomitant]
     Dates: start: 20030218
  4. CONJUGATED ESTROGENS [Concomitant]
     Dates: start: 20041214
  5. PREDNISOLONE [Concomitant]
     Dates: start: 20031014
  6. LANSOPRAZOLE [Concomitant]
     Dates: start: 20030619

REACTIONS (5)
  - LOWER RESPIRATORY TRACT INFECTION [None]
  - LUNG CONSOLIDATION [None]
  - MALAISE [None]
  - NAUSEA [None]
  - VOMITING [None]
